FAERS Safety Report 5194340-9 (Version None)
Quarter: 2006Q4

REPORT INFORMATION
  Report Type: 
  Country: None (occurrence: None)
  Receive Date: 20061228
  Receipt Date: 20061124
  Transmission Date: 20070319
  Serious: Yes (Hospitalization, Other)
  Sender: FDA-Public Use
  Company Number: JP-PFIZER INC-2006145819

PATIENT
  Sex: Male
  Weight: 55 kg

DRUGS (8)
  1. ZYVOX [Suspect]
     Indication: STAPHYLOCOCCAL INFECTION
     Dosage: DAILY DOSE:1200MG
     Route: 042
     Dates: start: 20061117, end: 20061122
  2. SOLDEM 1 [Concomitant]
     Route: 042
  3. ALL OTHER THERAPEUTIC PRODUCTS [Concomitant]
     Route: 042
     Dates: end: 20061119
  4. MINOCYCLINE HCL [Concomitant]
     Route: 042
     Dates: start: 20061109, end: 20061112
  5. CEFTRIAXONE SODIUM [Concomitant]
     Route: 042
     Dates: start: 20061111, end: 20061117
  6. ENDOXAN [Concomitant]
     Dates: start: 20061113
  7. THALIDOMIDE [Concomitant]
     Route: 048
     Dates: start: 20061107
  8. RED BLOOD CELLS [Concomitant]
     Route: 042
     Dates: start: 20061107, end: 20061206

REACTIONS (1)
  - HYPERKALAEMIA [None]
